FAERS Safety Report 9367691 (Version 2)
Quarter: 2013Q3

REPORT INFORMATION
  Report Type: Spontaneous
  Country: BR (occurrence: BR)
  Receive Date: 20130625
  Receipt Date: 20130702
  Transmission Date: 20140515
  Serious: Yes (Death)
  Sender: FDA-Public Use
  Company Number: BR-ABBOTT-13P-020-1108948-00

PATIENT
  Sex: 0

DRUGS (1)
  1. SURVANTA [Suspect]
     Indication: PRODUCT USED FOR UNKNOWN INDICATION

REACTIONS (2)
  - Pulmonary haemorrhage [Fatal]
  - Drug ineffective [Unknown]
